FAERS Safety Report 13092581 (Version 1)
Quarter: 2017Q1

REPORT INFORMATION
  Report Type: Spontaneous
  Country: US (occurrence: US)
  Receive Date: 20170106
  Receipt Date: 20170106
  Transmission Date: 20170428
  Serious: No
  Sender: FDA-Public Use
  Company Number: US-JNJFOC-20161201092

PATIENT
  Age: 89 Year
  Sex: Female
  Weight: 82.1 kg

DRUGS (1)
  1. TYLENOL EXTRA STRENGTH [Suspect]
     Active Substance: ACETAMINOPHEN
     Indication: ARTHRITIS
     Dosage: AS NEEDED-2 CAPLETS ONCE OR TWICE A DAY
     Route: 048

REACTIONS (2)
  - Product closure removal difficult [Unknown]
  - Incorrect product storage [Unknown]
